FAERS Safety Report 7876408-9 (Version None)
Quarter: 2011Q4

REPORT INFORMATION
  Report Type: 
  Country: None (occurrence: None)
  Receive Date: 20111031
  Receipt Date: 20111019
  Transmission Date: 20120403
  Serious: Yes (Other)
  Sender: FDA-Public Use
  Company Number: PHHY2011BR92999

PATIENT
  Age: 10 Year
  Sex: Male

DRUGS (2)
  1. RITALIN [Suspect]
     Dosage: 10 MG
  2. RITALIN LA [Suspect]
     Dosage: 30 MG, UNK

REACTIONS (4)
  - HEART RATE INCREASED [None]
  - DYSPHAGIA [None]
  - MITRAL VALVE STENOSIS [None]
  - CARDIAC MURMUR [None]
